FAERS Safety Report 10821086 (Version 1)
Quarter: 2015Q1

REPORT INFORMATION
  Report Type: Report from Study
  Country: US (occurrence: None)
  Receive Date: 20150213
  Receipt Date: 20150213
  Transmission Date: 20150721
  Serious: Yes (Hospitalization)
  Sender: FDA-Public Use
  Company Number: 2014BI129393

PATIENT
  Sex: Female

DRUGS (2)
  1. PLEGRIDY [Suspect]
     Active Substance: PEGINTERFERON BETA-1A
     Indication: PRODUCT USED FOR UNKNOWN INDICATION
     Dates: start: 20140703, end: 20141025
  2. AVONEX [Concomitant]
     Active Substance: INTERFERON BETA-1A

REACTIONS (5)
  - Sepsis [None]
  - Acute respiratory failure [None]
  - Influenza [None]
  - Urinary tract infection [None]
  - Pneumonia [None]
